FAERS Safety Report 6984158-6 (Version None)
Quarter: 2010Q3

REPORT INFORMATION
  Report Type: 
  Country: None (occurrence: None)
  Receive Date: 20100915
  Receipt Date: 20090630
  Transmission Date: 20110219
  Serious: No
  Sender: FDA-Public Use
  Company Number: US-WYE-H09985509

PATIENT
  Age: 74 Year
  Sex: Female
  Weight: 77.18 kg

DRUGS (3)
  1. ADVIL LIQUI-GELS [Suspect]
     Indication: PAIN
     Dosage: 2 CAPSULES AS NEEDED
     Route: 048
     Dates: start: 19990101
  2. JANUVIA [Concomitant]
  3. AMARYL [Concomitant]

REACTIONS (2)
  - CONDITION AGGRAVATED [None]
  - DIABETES MELLITUS [None]
